FAERS Safety Report 13639170 (Version 1)
Quarter: 2017Q2

REPORT INFORMATION
  Report Type: Spontaneous
  Country: US (occurrence: US)
  Receive Date: 20170609
  Receipt Date: 20170609
  Transmission Date: 20170830
  Serious: No
  Sender: FDA-Public Use
  Company Number: US-ROCHE-1019918

PATIENT
  Sex: Female

DRUGS (1)
  1. KLONOPIN [Suspect]
     Active Substance: CLONAZEPAM
     Indication: PRODUCT USED FOR UNKNOWN INDICATION
     Route: 048

REACTIONS (6)
  - Withdrawal syndrome [Unknown]
  - Hyperhidrosis [Unknown]
  - Tremor [Unknown]
  - Initial insomnia [Unknown]
  - Dysgeusia [Unknown]
  - Anxiety [Unknown]
